FAERS Safety Report 21308144 (Version 1)
Quarter: 2022Q3

REPORT INFORMATION
  Report Type: Report from Study
  Country: US (occurrence: US)
  Receive Date: 20220908
  Receipt Date: 20220908
  Transmission Date: 20221026
  Serious: Yes (Death, Other)
  Sender: FDA-Public Use
  Company Number: US-PFIZER INC-PV202200055092

PATIENT

DRUGS (2)
  1. CARBOPLATIN [Suspect]
     Active Substance: CARBOPLATIN
     Indication: Germ cell cancer
     Dosage: 700 MG/M2, (3 CONSECUTIVE DAYS)
  2. ETOPOSIDE [Suspect]
     Active Substance: ETOPOSIDE
     Indication: Germ cell cancer
     Dosage: 750 MG/M2, (3 CONSECUTIVE DAYS)

REACTIONS (1)
  - Death [Fatal]
